FAERS Safety Report 5816322-3 (Version None)
Quarter: 2008Q3

REPORT INFORMATION
  Report Type: 
  Country: None (occurrence: None)
  Receive Date: 20080721
  Receipt Date: 20080630
  Transmission Date: 20090109
  Serious: No
  Sender: FDA-Public Use
  Company Number: AR-ELI_LILLY_AND_COMPANY-AR200807000339

PATIENT
  Sex: Female

DRUGS (2)
  1. CYMBALTA [Suspect]
     Indication: HEADACHE
     Dosage: 60 MG, DAILY (1/D)
     Route: 048
     Dates: start: 20080627, end: 20080628
  2. CORTICOSTEROIDS [Concomitant]
     Indication: HEADACHE
     Dosage: UNK, UNKNOWN
     Route: 065

REACTIONS (9)
  - ABDOMINAL PAIN UPPER [None]
  - ANOREXIA [None]
  - DIARRHOEA [None]
  - LIVER DISORDER [None]
  - MALAISE [None]
  - NAUSEA [None]
  - SWELLING FACE [None]
  - VOMITING [None]
  - YELLOW SKIN [None]
